FAERS Safety Report 23176822 (Version 1)
Quarter: 2023Q4

REPORT INFORMATION
  Report Type: Report from Study
  Country: US (occurrence: US)
  Receive Date: 20231113
  Receipt Date: 20231113
  Transmission Date: 20240109
  Serious: No
  Sender: FDA-Public Use
  Company Number: US-002147023-NVSC2023US241266

PATIENT
  Sex: Male
  Weight: 86.18 kg

DRUGS (1)
  1. COSENTYX [Suspect]
     Active Substance: SECUKINUMAB
     Indication: Psoriasis
     Dosage: UNK
     Route: 065

REACTIONS (11)
  - Rebound psoriasis [Unknown]
  - Rash [Unknown]
  - Skin irritation [Unknown]
  - Pruritus [Unknown]
  - Erythema [Unknown]
  - Skin exfoliation [Unknown]
  - Skin plaque [Unknown]
  - Papule [Unknown]
  - Nail psoriasis [Unknown]
  - Guttate psoriasis [Unknown]
  - Skin mass [Unknown]
